FAERS Safety Report 5597654-3 (Version None)
Quarter: 2008Q1

REPORT INFORMATION
  Report Type: 
  Country: None (occurrence: None)
  Receive Date: 20080121
  Receipt Date: 20080111
  Transmission Date: 20080703
  Serious: Yes (Other)
  Sender: FDA-Public Use
  Company Number: DE-ABBOTT-07P-062-0363517-00

PATIENT
  Age: 1 Day
  Sex: Female
  Weight: 2.74 kg

DRUGS (2)
  1. RITONAVIR SOFT GELATIN CAPSULES [Suspect]
     Indication: DRUG EXPOSURE DURING PREGNANCY
     Route: 064
  2. APTIVUS [Suspect]
     Indication: DRUG EXPOSURE DURING PREGNANCY
     Route: 064

REACTIONS (2)
  - ASPHYXIA [None]
  - NEONATAL ASPIRATION [None]
